FAERS Safety Report 23558373 (Version 1)
Quarter: 2024Q1

REPORT INFORMATION
  Report Type: Spontaneous
  Country: US (occurrence: US)
  Receive Date: 20240223
  Receipt Date: 20240223
  Transmission Date: 20240409
  Serious: Yes (Hospitalization)
  Sender: FDA-Public Use
  Company Number: US-BRISTOL-MYERS SQUIBB COMPANY-2024-029244

PATIENT
  Age: 70 Year
  Sex: Female
  Weight: 79.38 kg

DRUGS (3)
  1. ELIQUIS [Suspect]
     Active Substance: APIXABAN
     Indication: Atrial fibrillation
     Route: 048
     Dates: start: 20240110, end: 20240212
  2. METOPROLOL [Concomitant]
     Active Substance: METOPROLOL
     Indication: Product used for unknown indication
  3. ARMOUR THYROID [Concomitant]
     Active Substance: THYROID, PORCINE
     Indication: Product used for unknown indication

REACTIONS (3)
  - Foreign body in respiratory tract [Not Recovered/Not Resolved]
  - Alopecia [Unknown]
  - Dysphagia [Unknown]

NARRATIVE: CASE EVENT DATE: 20240201
